FAERS Safety Report 9805783 (Version 3)
Quarter: 2014Q3

REPORT INFORMATION
  Report Type: Spontaneous
  Country: US (occurrence: US)
  Receive Date: 20140109
  Receipt Date: 20140902
  Transmission Date: 20150326
  Serious: Yes (Other)
  Sender: FDA-Public Use
  Company Number: US-009507513-1401USA002748

PATIENT
  Sex: Female
  Weight: 60 kg

DRUGS (1)
  1. NUVARING [Suspect]
     Active Substance: ETHINYL ESTRADIOL\ETONOGESTREL
     Route: 067

REACTIONS (13)
  - Anaemia [Unknown]
  - Acute lymphocytic leukaemia [Unknown]
  - Candiduria [Unknown]
  - Blood creatinine increased [Unknown]
  - Enterovirus infection [Unknown]
  - Transfusion reaction [Unknown]
  - Thrombocytopenia [Unknown]
  - Clostridium difficile colitis [Unknown]
  - Staphylococcal infection [Unknown]
  - Deep vein thrombosis [Unknown]
  - Hypertension [Unknown]
  - Pyrexia [Unknown]
  - Renal impairment [Unknown]

NARRATIVE: CASE EVENT DATE: 2004
